FAERS Safety Report 8480624 (Version 2)
Quarter: 2012Q4

REPORT INFORMATION
  Report Type: 
  Country: CN (occurrence: CN)
  Receive Date: 20120328
  Receipt Date: 20121101
  Transmission Date: 20130627
  Serious: Yes (Congenital Anomaly)
  Sender: FDA-Public Use
  Company Number: CN-GLAXOSMITHKLINE-B0791181A

PATIENT

DRUGS (1)
  1. HEPTODIN [Suspect]
     Indication: HEPATITIS B
     Dosage: .1G per day
     Route: 064
     Dates: start: 2008

REACTIONS (3)
  - Foetal malformation [Not Recovered/Not Resolved]
  - Abortion induced [Unknown]
  - Exposure via body fluid [Unknown]
